FAERS Safety Report 5919178-3 (Version None)
Quarter: 2008Q4

REPORT INFORMATION
  Report Type: 
  Country: None (occurrence: None)
  Receive Date: 20081015
  Receipt Date: 20081010
  Transmission Date: 20090506
  Serious: Yes (Hospitalization)
  Sender: FDA-Public Use
  Company Number: US-MERCK-0807USA04541

PATIENT
  Sex: Female

DRUGS (2)
  1. JANUVIA [Suspect]
     Indication: BLOOD GLUCOSE
     Route: 048
     Dates: start: 20070701
  2. METFORMIN [Concomitant]
     Route: 065

REACTIONS (2)
  - GASTROENTERITIS [None]
  - WEIGHT DECREASED [None]
